FAERS Safety Report 21303633 (Version 2)
Quarter: 2022Q3

REPORT INFORMATION
  Report Type: Report from Study
  Country: BR (occurrence: BR)
  Receive Date: 20220907
  Receipt Date: 20220930
  Transmission Date: 20221027
  Serious: Yes (Other)
  Sender: FDA-Public Use
  Company Number: BR-JNJFOC-20220905403

PATIENT
  Age: 13 Year
  Sex: Female
  Weight: 40 kg

DRUGS (2)
  1. INFLIXIMAB [Suspect]
     Active Substance: INFLIXIMAB
     Indication: Colitis
     Route: 041
     Dates: start: 2022
  2. REMICADE [Suspect]
     Active Substance: INFLIXIMAB
     Indication: Colitis
     Route: 041

REACTIONS (4)
  - Anaphylactic shock [Unknown]
  - Diarrhoea haemorrhagic [Not Recovered/Not Resolved]
  - Anaemia [Not Recovered/Not Resolved]
  - Drug ineffective [Unknown]

NARRATIVE: CASE EVENT DATE: 20220826
